FAERS Safety Report 15639634 (Version 1)
Quarter: 2018Q4

REPORT INFORMATION
  Report Type: Spontaneous
  Country: US (occurrence: US)
  Receive Date: 20181120
  Receipt Date: 20181120
  Transmission Date: 20190205
  Serious: Yes (Hospitalization)
  Sender: FDA-Public Use
  Company Number: US-LUNDBECK-DKLU2057201

PATIENT
  Age: 37 Year
  Sex: Male

DRUGS (1)
  1. ONFI [Suspect]
     Active Substance: CLOBAZAM
     Indication: EPILEPSY
     Route: 048
     Dates: start: 20150611

REACTIONS (2)
  - Drug withdrawal convulsions [Unknown]
  - Therapy cessation [Unknown]

NARRATIVE: CASE EVENT DATE: 201806
